FAERS Safety Report 19236160 (Version 2)
Quarter: 2021Q3

REPORT INFORMATION
  Report Type: Spontaneous
  Country: US (occurrence: US)
  Receive Date: 20210510
  Receipt Date: 20210720
  Transmission Date: 20211014
  Serious: Yes (Hospitalization, Other)
  Sender: FDA-Public Use
  Company Number: NVSC2021US094396

PATIENT
  Sex: Female

DRUGS (1)
  1. COSENTYX [Suspect]
     Active Substance: SECUKINUMAB
     Indication: PRODUCT USED FOR UNKNOWN INDICATION
     Dosage: UNK
     Route: 065

REACTIONS (7)
  - Blood potassium decreased [Unknown]
  - Ill-defined disorder [Unknown]
  - Fall [Unknown]
  - Hepatic cirrhosis [Unknown]
  - Liver disorder [Unknown]
  - Illness [Unknown]
  - Blood electrolytes decreased [Unknown]
